FAERS Safety Report 13338914 (Version 15)
Quarter: 2017Q4

REPORT INFORMATION
  Report Type: Spontaneous
  Country: US (occurrence: US)
  Receive Date: 20170315
  Receipt Date: 20171211
  Transmission Date: 20180320
  Serious: Yes (Congenital Anomaly, Other)
  Sender: FDA-Public Use
  Company Number: PHEH2017US007504

PATIENT
  Sex: Male

DRUGS (3)
  1. ZOFRAN [Suspect]
     Active Substance: ONDANSETRON HYDROCHLORIDE
     Indication: FOETAL EXPOSURE DURING PREGNANCY
     Dosage: MOTHER^S DOSE: 8 MG, UNK
     Route: 064
  2. ONDANSETRON [Suspect]
     Active Substance: ONDANSETRON
     Indication: FOETAL EXPOSURE DURING PREGNANCY
     Dosage: MOTHER^S DOSE: 08 MG
     Route: 064
  3. ZOFRAN ODT [Suspect]
     Active Substance: ONDANSETRON HYDROCHLORIDE
     Indication: FOETAL EXPOSURE DURING PREGNANCY
     Route: 064

REACTIONS (48)
  - Hypoplastic left heart syndrome [Unknown]
  - Ventricular hypoplasia [Unknown]
  - Aortic valve atresia [Unknown]
  - Cyanosis neonatal [Unknown]
  - Foetal exposure during pregnancy [Unknown]
  - Insomnia [Unknown]
  - Injury [Unknown]
  - Gastrooesophageal reflux disease [Unknown]
  - Weight decrease neonatal [Unknown]
  - Rhinorrhoea [Unknown]
  - Upper respiratory tract infection [Unknown]
  - Hypersomnia [Unknown]
  - Left-to-right cardiac shunt [Unknown]
  - Pleural effusion [Unknown]
  - Respiratory distress [Unknown]
  - Dermatitis diaper [Recovering/Resolving]
  - Contusion [Unknown]
  - Ear pain [Unknown]
  - Ear infection [Unknown]
  - Poor feeding infant [Unknown]
  - Sleep apnoea syndrome [Unknown]
  - Dermoid cyst [Unknown]
  - Tricuspid valve incompetence [Unknown]
  - Pulmonary congestion [Unknown]
  - Haematochezia [Recovered/Resolved]
  - Positional plagiocephaly [Recovering/Resolving]
  - Eczema [Unknown]
  - Cough [Not Recovered/Not Resolved]
  - Dysphonia [Unknown]
  - Otitis media [Recovered/Resolved]
  - Bronchial hyperreactivity [Unknown]
  - Fatigue [Unknown]
  - Pyrexia [Unknown]
  - Heart disease congenital [Unknown]
  - Mitral valve stenosis [Unknown]
  - Aortic valve incompetence [Unknown]
  - Croup infectious [Unknown]
  - Wheezing [Unknown]
  - Asthma [Unknown]
  - Atrial septal defect [Unknown]
  - Phimosis [Unknown]
  - Neonatal tachypnoea [Unknown]
  - Cephalhaematoma [Unknown]
  - Diarrhoea [Recovering/Resolving]
  - Vitamin D deficiency [Unknown]
  - Patent ductus arteriosus [Unknown]
  - Pupils unequal [Unknown]
  - Dyspnoea [Unknown]
